FAERS Safety Report 12679172 (Version 1)
Quarter: 2016Q3

REPORT INFORMATION
  Report Type: Spontaneous
  Country: FR (occurrence: FR)
  Receive Date: 20160824
  Receipt Date: 20160824
  Transmission Date: 20161109
  Serious: Yes (Other)
  Sender: FDA-Public Use
  Company Number: FR-ACCORD-043286

PATIENT
  Age: 61 Year
  Sex: Male

DRUGS (16)
  1. TRANSIPEG [Concomitant]
     Active Substance: POLYETHYLENE GLYCOL 3350
  2. LYRICA [Concomitant]
     Active Substance: PREGABALIN
  3. CISPLATIN ACCORD [Suspect]
     Active Substance: CISPLATIN
     Indication: SQUAMOUS CELL CARCINOMA
     Dosage: 98 MG DIVIDED ON DAY1 AND 2?0.9333 MG (49 MG TWICE IN 15 WEEKS)
     Route: 042
     Dates: start: 20160107
  4. MODANE [Concomitant]
     Active Substance: CALCIUM PANTOTHENATE\SENNA LEAF
  5. PAROXETINE. [Concomitant]
     Active Substance: PAROXETINE
  6. INEXIUM [Concomitant]
     Active Substance: ESOMEPRAZOLE
  7. EPREX [Concomitant]
     Active Substance: ERYTHROPOIETIN
  8. FINASTERIDE. [Concomitant]
     Active Substance: FINASTERIDE
  9. SILODYX [Concomitant]
     Active Substance: SILODOSIN
  10. FLECTOR [Concomitant]
     Active Substance: DICLOFENAC EPOLAMINE
  11. FLUOROURACIL ACCORD [Suspect]
     Active Substance: FLUOROURACIL
     Indication: SQUAMOUS CELL CARCINOMA
     Dosage: (140 MG)?1960 MG ON DAY 1, 2, 3 AND 4
     Route: 042
     Dates: start: 20160107
  12. ERBITUX [Suspect]
     Active Substance: CETUXIMAB
     Indication: SQUAMOUS CELL CARCINOMA
     Dosage: 28.5714 MG/M2 ON DAY1 - DAY15 - DAY 28 PROTOCOL.
     Route: 042
     Dates: start: 20160107
  13. PERMIXON [Concomitant]
     Active Substance: SAW PALMETTO
  14. ALPRAZOLAM. [Concomitant]
     Active Substance: ALPRAZOLAM
  15. GRANUDOXY [Concomitant]
  16. SKENAN [Concomitant]
     Active Substance: MORPHINE SULFATE

REACTIONS (3)
  - Rash papular [Not Recovered/Not Resolved]
  - Folliculitis [Not Recovered/Not Resolved]
  - Pruritus [Not Recovered/Not Resolved]

NARRATIVE: CASE EVENT DATE: 201607
